FAERS Safety Report 14878316 (Version 2)
Quarter: 2018Q2

REPORT INFORMATION
  Report Type: Spontaneous
  Country: US (occurrence: US)
  Receive Date: 20180511
  Receipt Date: 20180511
  Transmission Date: 20180711
  Serious: No
  Sender: FDA-Public Use
  Company Number: US-BAUSCH-BL-2017-035373

PATIENT
  Age: 75 Year
  Sex: Female
  Weight: 67.65 kg

DRUGS (3)
  1. LATANOPROST. [Suspect]
     Active Substance: LATANOPROST
     Indication: GLAUCOMA
     Dosage: ONE DROP IN EACH EYE EVERY EVENING
     Route: 047
     Dates: start: 20171208, end: 20171215
  2. KRILL OIL [Concomitant]
     Active Substance: DIETARY SUPPLEMENT
     Indication: PRODUCT USED FOR UNKNOWN INDICATION
     Route: 048
  3. VITAMIN D [Concomitant]
     Active Substance: CHOLECALCIFEROL
     Indication: PRODUCT USED FOR UNKNOWN INDICATION
     Route: 048

REACTIONS (7)
  - Vision blurred [Recovering/Resolving]
  - Eye irritation [Recovering/Resolving]
  - Eye pruritus [Recovering/Resolving]
  - Foreign body in eye [Recovering/Resolving]
  - Eye pain [Recovering/Resolving]
  - Dry throat [Recovering/Resolving]
  - Pruritus generalised [Recovering/Resolving]

NARRATIVE: CASE EVENT DATE: 201712
